FAERS Safety Report 20024808 (Version 1)
Quarter: 2021Q4

REPORT INFORMATION
  Report Type: Spontaneous
  Country: US (occurrence: US)
  Receive Date: 20211102
  Receipt Date: 20211102
  Transmission Date: 20220303
  Serious: Yes (Death, Other)
  Sender: FDA-Public Use
  Company Number: US-PFIZER INC-202101458271

PATIENT
  Age: 70 Year
  Sex: Female
  Weight: 65.77 kg

DRUGS (4)
  1. CELONTIN [Suspect]
     Active Substance: METHSUXIMIDE
     Indication: Seizure
     Dosage: 300 MG, 2X/DAY (ONE IN BED TIME)
     Route: 048
  2. PRIMIDONE [Concomitant]
     Active Substance: PRIMIDONE
     Dosage: UNK
  3. DIAMOX SEQUELS [Concomitant]
     Active Substance: ACETAZOLAMIDE
     Indication: Brain oedema
     Dosage: UNK
  4. MYSOLINE [Concomitant]
     Active Substance: PRIMIDONE
     Dosage: UNK

REACTIONS (1)
  - Seizure [Fatal]
